FAERS Safety Report 26071911 (Version 6)
Quarter: 2025Q4

REPORT INFORMATION
  Report Type: Spontaneous
  Country: EU (occurrence: EU)
  Receive Date: 20251120
  Receipt Date: 20251217
  Transmission Date: 20260117
  Serious: Yes (Hospitalization, Other)
  Sender: NOVARTIS
  Company Number: EU-STADA-01374450

PATIENT
  Age: 34 Year
  Sex: Female

DRUGS (3)
  1. FINGOLIMOD [Suspect]
     Active Substance: FINGOLIMOD
     Indication: Multiple sclerosis relapse
     Dosage: 0.5 MG, QD
     Route: 048
  2. FINGOLIMOD [Suspect]
     Active Substance: FINGOLIMOD
     Indication: Relapsing-remitting multiple sclerosis
     Dosage: UNK
     Route: 065
  3. PREDNISOLONE [Concomitant]
     Active Substance: PREDNISOLONE
     Indication: Product used for unknown indication
     Dosage: 60 MG, QD
     Route: 065
     Dates: start: 20230526

REACTIONS (12)
  - Meningitis cryptococcal [Unknown]
  - Photophobia [Recovered/Resolved]
  - Headache [Recovering/Resolving]
  - Vomiting [Recovered/Resolved]
  - Lymphopenia [Recovered/Resolved]
  - Immune reconstitution inflammatory syndrome [Recovered/Resolved with Sequelae]
  - Facial paresis [Recovered/Resolved]
  - Demyelination [Not Recovered/Not Resolved]
  - Intracranial pressure increased [Recovering/Resolving]
  - CSF pressure increased [Recovering/Resolving]
  - Cranial nerve paralysis [Unknown]
  - Eye pain [Unknown]

NARRATIVE: CASE EVENT DATE: 20230622
